FAERS Safety Report 8308273-X (Version None)
Quarter: 2012Q2

REPORT INFORMATION
  Report Type: 
  Country: None (occurrence: None)
  Receive Date: 20120419
  Receipt Date: 20120404
  Transmission Date: 20120825
  Serious: Yes (Other)
  Sender: FDA-Public Use
  Company Number: MCA-N-12-016/02

PATIENT
  Age: 5 Month
  Sex: Male
  Weight: 8 kg

DRUGS (2)
  1. TRAMADOL HCL [Suspect]
     Dosage: 0.2 MG/KG/HOUR
  2. GRANISETRON [Suspect]
     Indication: POSTOPERATIVE ANALGESIA
     Dosage: 0.5 MG/KG/DAY

REACTIONS (3)
  - EPILEPSY [None]
  - PYREXIA [None]
  - MUSCULOSKELETAL STIFFNESS [None]
